FAERS Safety Report 5773973-2 (Version None)
Quarter: 2008Q2

REPORT INFORMATION
  Report Type: 
  Country: None (occurrence: None)
  Receive Date: 20080616
  Receipt Date: 20080606
  Transmission Date: 20081010
  Serious: Yes (Other)
  Sender: FDA-Public Use
  Company Number: US-ABBOTT-08P-163-0455777-00

PATIENT
  Sex: Female
  Weight: 36.774 kg

DRUGS (5)
  1. ZEMPLAR [Suspect]
     Indication: VITAMIN D DEFICIENCY
     Route: 042
     Dates: start: 20070401
  2. ZEMPLAR [Suspect]
     Route: 048
  3. ZEMPLAR [Suspect]
     Route: 042
     Dates: start: 20080501, end: 20080501
  4. EPOETIN ALFA [Concomitant]
     Indication: DRUG USE FOR UNKNOWN INDICATION
     Dosage: 1 VIAL EVERY OTHER MONDAY
     Route: 042
     Dates: start: 20080401
  5. PHOSPHORUS BINDERS [Concomitant]
     Indication: DRUG USE FOR UNKNOWN INDICATION
     Route: 048
     Dates: start: 20080501, end: 20080501

REACTIONS (3)
  - CHEST PAIN [None]
  - DYSPNOEA [None]
  - LIP SWELLING [None]
